FAERS Safety Report 24189839 (Version 1)
Quarter: 2024Q3

REPORT INFORMATION
  Report Type: Spontaneous
  Country: US (occurrence: US)
  Receive Date: 20240808
  Receipt Date: 20240808
  Transmission Date: 20241016
  Serious: Yes (Hospitalization, Other)
  Sender: NOVO NORDISK
  Company Number: US-NOVOPROD-1264017

PATIENT
  Age: 41 Year

DRUGS (1)
  1. WEGOVY [Suspect]
     Active Substance: SEMAGLUTIDE
     Indication: Weight decreased
     Dosage: 0.25 MG, QW
     Route: 058
     Dates: start: 202306, end: 202309

REACTIONS (13)
  - Gastrointestinal inflammation [Unknown]
  - Blood pressure abnormal [Unknown]
  - Toxic shock syndrome [Unknown]
  - Loss of consciousness [Recovered/Resolved]
  - Haematochezia [Unknown]
  - Immobile [Unknown]
  - Diplopia [Unknown]
  - Oxygen saturation decreased [Unknown]
  - Blood loss anaemia [Unknown]
  - Intestinal obstruction [Unknown]
  - Dehydration [Unknown]
  - Blood pressure decreased [Unknown]
  - Impaired gastric emptying [Unknown]

NARRATIVE: CASE EVENT DATE: 20230101
